FAERS Safety Report 4507445-X (Version None)
Quarter: 2004Q4

REPORT INFORMATION
  Report Type: 
  Country: None (occurrence: None)
  Receive Date: 20041118
  Receipt Date: 20041101
  Transmission Date: 20050328
  Serious: Yes (Other)
  Sender: FDA-Public Use
  Company Number: DSA_25312_2004

PATIENT
  Age: 51 Year
  Sex: Female
  Weight: 122.4712 kg

DRUGS (6)
  1. ATIVAN [Suspect]
     Indication: ANXIETY
     Dosage: 2 MG TID PO
     Route: 048
  2. EFFEXOR [Concomitant]
  3. SYNTHROID [Concomitant]
  4. DIOVAN HCT [Concomitant]
  5. NORVASC [Concomitant]
  6. ULTRAM [Concomitant]

REACTIONS (10)
  - ASTHENIA [None]
  - DECREASED APPETITE [None]
  - DRY MOUTH [None]
  - FATIGUE [None]
  - FEELING JITTERY [None]
  - HYPERHIDROSIS [None]
  - INSOMNIA [None]
  - LISTLESS [None]
  - OROPHARYNGEAL SWELLING [None]
  - RESTLESSNESS [None]
